FAERS Safety Report 7042537-5 (Version None)
Quarter: 2010Q4

REPORT INFORMATION
  Report Type: 
  Country: None (occurrence: None)
  Receive Date: 20101013
  Receipt Date: 20100428
  Transmission Date: 20110411
  Serious: No
  Sender: FDA-Public Use
  Company Number: US-ASTRAZENECA-2010SE19121

PATIENT
  Age: 67 Year
  Sex: Male
  Weight: 90.7 kg

DRUGS (5)
  1. SYMBICORT [Suspect]
     Indication: CHRONIC OBSTRUCTIVE PULMONARY DISEASE
     Dosage: 160 MCG
     Route: 055
     Dates: start: 20100414
  2. ALBUTEROL [Concomitant]
  3. ATROVENT [Concomitant]
  4. VICODIN [Concomitant]
  5. XANAX [Concomitant]

REACTIONS (7)
  - ANXIETY [None]
  - COUGH [None]
  - INCREASED UPPER AIRWAY SECRETION [None]
  - OROPHARYNGEAL PAIN [None]
  - PAIN [None]
  - RHINORRHOEA [None]
  - THROAT IRRITATION [None]
